FAERS Safety Report 8586859-5 (Version None)
Quarter: 2012Q3

REPORT INFORMATION
  Report Type: 
  Country: None (occurrence: None)
  Receive Date: 20120810
  Receipt Date: 20120508
  Transmission Date: 20120928
  Serious: Yes (Life-Threatening, Other)
  Sender: FDA-Public Use
  Company Number: CHPA2012US017198

PATIENT

DRUGS (1)
  1. PHENYLEPHRINE HYDROCHLORIDE [Suspect]
     Dosage: UNK, UNK
     Route: 065

REACTIONS (2)
  - FEELING ABNORMAL [None]
  - DRUG DEPENDENCE [None]
